FAERS Safety Report 24166159 (Version 7)
Quarter: 2025Q1

REPORT INFORMATION
  Report Type: Report from Study
  Country: GB (occurrence: GB)
  Receive Date: 20240802
  Receipt Date: 20250311
  Transmission Date: 20250408
  Serious: Yes (Other)
  Sender: ABBVIE
  Company Number: GB-ABBVIE-5792024

PATIENT
  Age: 60 Year
  Sex: Female

DRUGS (9)
  1. CARBIDOPA\LEVODOPA [Suspect]
     Active Substance: CARBIDOPA\LEVODOPA
     Indication: Parkinson^s disease
     Route: 050
  2. CARBIDOPA\LEVODOPA [Suspect]
     Active Substance: CARBIDOPA\LEVODOPA
     Route: 050
  3. CARBIDOPA\LEVODOPA [Suspect]
     Active Substance: CARBIDOPA\LEVODOPA
     Route: 050
  4. CARBIDOPA\LEVODOPA [Suspect]
     Active Substance: CARBIDOPA\LEVODOPA
     Route: 050
  5. ERYTHROMYCIN [Concomitant]
     Active Substance: ERYTHROMYCIN
     Indication: Product used for unknown indication
  6. AMANTADINE [Concomitant]
     Active Substance: AMANTADINE
     Indication: Parkinson^s disease
     Route: 065
  7. GABAPENTIN [Concomitant]
     Active Substance: GABAPENTIN
     Indication: Parkinson^s disease
  8. OMEPRAZOLE [Concomitant]
     Active Substance: OMEPRAZOLE
     Indication: Product used for unknown indication
  9. BENSERAZIDE HYDROCHLORIDE\LEVODOPA [Concomitant]
     Active Substance: BENSERAZIDE HYDROCHLORIDE\LEVODOPA
     Indication: Parkinson^s disease
     Route: 048

REACTIONS (30)
  - Foot amputation [Unknown]
  - Hypotension [Unknown]
  - Decreased appetite [Recovered/Resolved]
  - On and off phenomenon [Not Recovered/Not Resolved]
  - Procedural pain [Unknown]
  - Dystonia [Not Recovered/Not Resolved]
  - Dyskinesia [Not Recovered/Not Resolved]
  - Weight decreased [Unknown]
  - Anxiety [Unknown]
  - Abnormal dreams [Not Recovered/Not Resolved]
  - Stoma site infection [Not Recovered/Not Resolved]
  - Headache [Recovering/Resolving]
  - Pain in extremity [Unknown]
  - Freezing phenomenon [Recovering/Resolving]
  - Depressed mood [Not Recovered/Not Resolved]
  - Therapeutic product effect variable [Unknown]
  - Dizziness [Unknown]
  - Confusional state [Recovering/Resolving]
  - Bowel movement irregularity [Recovered/Resolved]
  - Device leakage [Not Recovered/Not Resolved]
  - Tremor [Unknown]
  - Device connection issue [Unknown]
  - Parkinson^s disease [Unknown]
  - Device dislocation [Unknown]
  - Back pain [Unknown]
  - Fall [Unknown]
  - Constipation [Unknown]
  - Device dislocation [Recovered/Resolved]
  - Wrong technique in device usage process [Unknown]
  - Pain [Unknown]

NARRATIVE: CASE EVENT DATE: 20240101
